FAERS Safety Report 12605123 (Version 1)
Quarter: 2016Q3

REPORT INFORMATION
  Report Type: Spontaneous
  Country: US (occurrence: US)
  Receive Date: 20160729
  Receipt Date: 20160729
  Transmission Date: 20161109
  Serious: Yes (Other)
  Sender: FDA-Public Use
  Company Number: US-HAEMONETICS CORP-1055680

PATIENT
  Age: 24 Year
  Sex: Male

DRUGS (2)
  1. LEUKOTRAP RC SYSTEM [Concomitant]
     Route: 042
     Dates: start: 20160516, end: 20160516
  2. CP2D AND AS-3 NUTRICEL [Suspect]
     Active Substance: ADENINE\CITRIC ACID MONOHYDRATE\DEXTROSE\SODIUM CHLORIDE\SODIUM CITRATE\SODIUM PHOSPHATE
     Indication: PRODUCT USED FOR UNKNOWN INDICATION
     Route: 042
     Dates: start: 20160516, end: 20160516

REACTIONS (1)
  - Cytomegalovirus infection [Recovered/Resolved]

NARRATIVE: CASE EVENT DATE: 20160516
